FAERS Safety Report 6244410-9 (Version None)
Quarter: 2009Q2

REPORT INFORMATION
  Report Type: 
  Country: None (occurrence: None)
  Receive Date: 20090625
  Receipt Date: 20090618
  Transmission Date: 20091009
  Serious: Yes (Other)
  Sender: FDA-Public Use
  Company Number: US-JNJFOC-20090607336

PATIENT
  Sex: Male
  Weight: 97.52 kg

DRUGS (5)
  1. FENTANYL TRANSDERMAL SYSTEM [Suspect]
     Indication: ARTHRALGIA
     Route: 062
  2. PLAVIX [Concomitant]
     Indication: CARDIAC DISORDER
     Route: 048
  3. ASPIRIN [Concomitant]
     Indication: CARDIAC DISORDER
     Route: 048
  4. LANTUS [Concomitant]
     Indication: DIABETES MELLITUS
     Dosage: 120 UNITS
     Route: 058
  5. NOVOLOG [Concomitant]
     Indication: DIABETES MELLITUS
     Dosage: 96 UNITS
     Route: 058

REACTIONS (4)
  - CORONARY ARTERY OCCLUSION [None]
  - DYSURIA [None]
  - NAUSEA [None]
  - PRODUCT QUALITY ISSUE [None]
